FAERS Safety Report 6181939-6 (Version None)
Quarter: 2009Q2

REPORT INFORMATION
  Report Type: 
  Country: None (occurrence: None)
  Receive Date: 20090506
  Receipt Date: 20090501
  Transmission Date: 20091009
  Serious: Yes (Hospitalization)
  Sender: FDA-Public Use
  Company Number: US-GILEAD-2009-0021250

PATIENT
  Sex: Female
  Weight: 76.726 kg

DRUGS (10)
  1. LETAIRIS [Suspect]
     Indication: PULMONARY ARTERIAL HYPERTENSION
     Dates: start: 20081001
  2. REVATIO [Concomitant]
  3. LASIX [Concomitant]
  4. DIGITOXIN TAB [Concomitant]
  5. ADVAIR HFA [Concomitant]
  6. CYPROHEPTADINE HCL [Concomitant]
  7. PREVACID [Concomitant]
  8. K-DUR [Concomitant]
  9. CARAFATE [Concomitant]
  10. KEPPRA [Concomitant]

REACTIONS (3)
  - OEDEMA PERIPHERAL [None]
  - PLEURAL EFFUSION [None]
  - RESPIRATORY DISTRESS [None]
